FAERS Safety Report 23698400 (Version 1)
Quarter: 2024Q2

REPORT INFORMATION
  Report Type: Spontaneous
  Country: US (occurrence: US)
  Receive Date: 20240402
  Receipt Date: 20240402
  Transmission Date: 20240716
  Serious: Yes (Other)
  Sender: FDA-Public Use
  Company Number: US-PFIZER INC-202400074145

PATIENT
  Age: 72 Year
  Sex: Male

DRUGS (1)
  1. METOPROLOL TARTRATE [Suspect]
     Active Substance: METOPROLOL TARTRATE
     Indication: Atrial fibrillation
     Dosage: UNK

REACTIONS (2)
  - Bradycardia [Unknown]
  - Off label use [Unknown]
